FAERS Safety Report 18581273 (Version 1)
Quarter: 2020Q4

REPORT INFORMATION
  Report Type: Spontaneous
  Country: US (occurrence: US)
  Receive Date: 20201204
  Receipt Date: 20201204
  Transmission Date: 20210114
  Serious: No
  Sender: FDA-Public Use
  Company Number: US-HARMONY BIOSCIENCES-2020HMY01401

PATIENT
  Sex: Female
  Weight: 56.69 kg

DRUGS (6)
  1. RITALIN [Concomitant]
     Active Substance: METHYLPHENIDATE HYDROCHLORIDE
  2. NUVIGIL [Concomitant]
     Active Substance: ARMODAFINIL
  3. ^VITAMIN B1, B12, B6^ INJECTION [Concomitant]
  4. COLESTIPOL [Concomitant]
     Active Substance: COLESTIPOL
  5. FOLIC ACID. [Concomitant]
     Active Substance: FOLIC ACID
  6. WAKIX [Suspect]
     Active Substance: PITOLISANT HYDROCHLORIDE
     Dosage: 8.9 MG, 1X/DAY
     Route: 048
     Dates: start: 2020, end: 2020

REACTIONS (2)
  - Hallucinations, mixed [Recovered/Resolved]
  - Abnormal dreams [Recovered/Resolved]

NARRATIVE: CASE EVENT DATE: 2020
